FAERS Safety Report 12209093 (Version 2)
Quarter: 2016Q2

REPORT INFORMATION
  Report Type: Spontaneous
  Country: US (occurrence: US)
  Receive Date: 20160324
  Receipt Date: 20160512
  Transmission Date: 20160815
  Serious: Yes (Other)
  Sender: FDA-Public Use
  Company Number: US-PFIZER INC-2015354877

PATIENT
  Age: 64 Year
  Sex: Female

DRUGS (2)
  1. ENBREL [Suspect]
     Active Substance: ETANERCEPT
     Indication: RHEUMATOID ARTHRITIS
     Dosage: 50 MG, QWK
     Route: 058
     Dates: start: 201507
  2. CELEBREX [Suspect]
     Active Substance: CELECOXIB
     Dosage: UNK
     Route: 065

REACTIONS (10)
  - Product use issue [Unknown]
  - Grip strength decreased [Unknown]
  - Arthropathy [Unknown]
  - Injection site pain [Unknown]
  - Sensitivity to weather change [Unknown]
  - Hepatitis B [Unknown]
  - Cyst [Unknown]
  - Dyspnoea [Unknown]
  - Liver disorder [Unknown]
  - Cardiac disorder [Unknown]
